FAERS Safety Report 24717537 (Version 1)
Quarter: 2024Q4

REPORT INFORMATION
  Report Type: Spontaneous
  Country: JP (occurrence: JP)
  Receive Date: 20241210
  Receipt Date: 20241210
  Transmission Date: 20250114
  Serious: Yes (Hospitalization, Other)
  Sender: MERCK
  Company Number: JP-MSD-M2024-51597

PATIENT
  Sex: Female

DRUGS (5)
  1. KEYTRUDA [Suspect]
     Active Substance: PEMBROLIZUMAB
     Indication: Breast cancer stage III
     Dosage: 200 MILLIGRAM, Q3W
     Route: 041
  2. DOXORUBICIN HYDROCHLORIDE [Suspect]
     Active Substance: DOXORUBICIN HYDROCHLORIDE
     Indication: Breast cancer stage III
     Dosage: UNK
     Route: 065
  3. CYCLOPHOSPHAMIDE [Suspect]
     Active Substance: CYCLOPHOSPHAMIDE
     Indication: Breast cancer stage III
     Dosage: UNK
     Route: 065
  4. CARBOPLATIN [Concomitant]
     Active Substance: CARBOPLATIN
     Indication: Breast cancer stage III
     Dosage: UNK
     Route: 065
  5. PACLITAXEL [Concomitant]
     Active Substance: PACLITAXEL
     Indication: Breast cancer stage III
     Dosage: UNK
     Route: 065

REACTIONS (2)
  - Cervical vertebral fracture [Unknown]
  - Dizziness [Unknown]
